FAERS Safety Report 7820936-9 (Version None)
Quarter: 2011Q4

REPORT INFORMATION
  Report Type: 
  Country: None (occurrence: None)
  Receive Date: 20111018
  Receipt Date: 20111007
  Transmission Date: 20120403
  Serious: Yes (Hospitalization)
  Sender: FDA-Public Use
  Company Number: IE-GLAXOSMITHKLINE-B0755913A

PATIENT
  Age: 28 Year
  Sex: Female
  Weight: 60 kg

DRUGS (5)
  1. MIDAZOLAM HCL [Concomitant]
     Indication: GENERAL ANAESTHESIA
     Dosage: 1MG PER DAY
     Route: 065
     Dates: start: 20110915, end: 20110915
  2. ZOFRAN [Suspect]
     Indication: PROCEDURAL NAUSEA
     Dosage: 4MG PER DAY
     Route: 042
     Dates: start: 20110915, end: 20110915
  3. DEXAMETHASONE [Suspect]
     Indication: PROCEDURAL NAUSEA
     Dosage: 4MG PER DAY
     Route: 042
     Dates: start: 20110915, end: 20110915
  4. PROPOFOL [Concomitant]
     Indication: GENERAL ANAESTHESIA
     Dosage: 200MCG PER DAY
     Route: 065
     Dates: start: 20110915, end: 20110915
  5. FENTANYL [Concomitant]
     Indication: PERIOPERATIVE ANALGESIA
     Dosage: 100MCG PER DAY
     Route: 065
     Dates: start: 20110915, end: 20110915

REACTIONS (6)
  - CHEST PAIN [None]
  - HYPOTENSION [None]
  - CHILLS [None]
  - CHEST DISCOMFORT [None]
  - DIZZINESS [None]
  - PALLOR [None]
